FAERS Safety Report 8774054 (Version 1)
Quarter: 2012Q4

REPORT INFORMATION
  Report Type: 
  Country: US (occurrence: US)
  Receive Date: 20120908
  Receipt Date: 20120908
  Transmission Date: 20130627
  Serious: Yes (Hospitalization, Other)
  Sender: FDA-Public Use
  Company Number: US-AMGEN-USASP2012055632

PATIENT
  Sex: Female

DRUGS (1)
  1. ENBREL [Suspect]
     Dosage: UNK
     Dates: start: 19981201

REACTIONS (3)
  - Labour complication [Unknown]
  - Beta haemolytic streptococcal infection [Unknown]
  - Pyrexia [Unknown]
